FAERS Safety Report 22714986 (Version 2)
Quarter: 2024Q3

REPORT INFORMATION
  Report Type: Spontaneous
  Country: FR (occurrence: FR)
  Receive Date: 20230718
  Receipt Date: 20240723
  Transmission Date: 20241016
  Serious: No
  Sender: ALKEM
  Company Number: FR-ALKEM LABORATORIES LIMITED-FR-ALKEM-2022-15339

PATIENT
  Age: 58 Year
  Sex: Female

DRUGS (7)
  1. DRONABINOL [Suspect]
     Active Substance: DRONABINOL
     Indication: Neuralgia
     Dosage: 10 MILLIGRAM, BID (PAST DRUG) SOFT CAPSULE MOLLE
     Route: 065
  2. DRONABINOL [Suspect]
     Active Substance: DRONABINOL
     Indication: Neuropathy peripheral
     Dosage: 5 MILLIGRAMS, BID (IN THE MORNING AND EVENING), CAPSULE MOLLE
     Route: 065
  3. DRONABINOL [Suspect]
     Active Substance: DRONABINOL
     Dosage: 7.5 MILLIGRAM, QD (IN THE EVENING), CAPSULE MOLLE
     Route: 065
  4. DRONABINOL [Suspect]
     Active Substance: DRONABINOL
     Dosage: 7.5 MILLIGRAM, QD (2.5 MG IN THE MORNING AND 5 MG IN THE EVENING) SOFT CAPSULE MOLLE
     Route: 048
     Dates: start: 20220614
  5. DRONABINOL [Suspect]
     Active Substance: DRONABINOL
     Dosage: 10 MILLIGRAM, QD  (2.5 MG IN THE MORNING AND 7.5 MG IN THE EVENING) SOFT CAPSULE MOLLE
     Route: 065
  6. ACUPAN [Concomitant]
     Active Substance: NEFOPAM HYDROCHLORIDE
     Indication: Product used for unknown indication
     Dosage: UNK, PRN (1 VIAL IF NEEDED)
     Route: 065
  7. ESOMEPRAZOLE [Concomitant]
     Active Substance: ESOMEPRAZOLE
     Indication: Product used for unknown indication
     Dosage: 1 DOSAGE FORM IN THE EVENING (ONE TABLET DAILY)
     Route: 065

REACTIONS (4)
  - Asthenia [Unknown]
  - Somnolence [Recovered/Resolved]
  - Off label use [Unknown]
  - Product prescribing issue [Unknown]

NARRATIVE: CASE EVENT DATE: 20220101
